FAERS Safety Report 20093550 (Version 1)
Quarter: 2021Q4

REPORT INFORMATION
  Report Type: Spontaneous
  Country: US (occurrence: None)
  Receive Date: 20211121
  Receipt Date: 20211121
  Transmission Date: 20220303
  Serious: Yes (Hospitalization)
  Sender: FDA-Public Use
  Company Number: US-ROCHE-2960816

PATIENT
  Age: 70 Year
  Sex: Male
  Weight: 84.444 kg

DRUGS (4)
  1. LUCENTIS [Suspect]
     Active Substance: RANIBIZUMAB
     Indication: Macular oedema
     Dosage: INJECTION IN LEFT EYE ;ONGOING: YES
     Route: 050
     Dates: start: 20210615
  2. LUCENTIS [Suspect]
     Active Substance: RANIBIZUMAB
     Indication: Retinal vein occlusion
  3. AVASTIN [Suspect]
     Active Substance: BEVACIZUMAB
     Indication: Macular oedema
     Dosage: INTERVAL BETWEEN DOSES VARIABLE - SEE ADDITIONAL INFORMATION FIELD ;ONGOING: NO
     Route: 065
     Dates: start: 2017, end: 20200520
  4. AVASTIN [Suspect]
     Active Substance: BEVACIZUMAB
     Indication: Retinal vein occlusion

REACTIONS (2)
  - Cardiac murmur [Not Recovered/Not Resolved]
  - Off label use [Unknown]

NARRATIVE: CASE EVENT DATE: 20170101
